FAERS Safety Report 7897580-0 (Version None)
Quarter: 2011Q4

REPORT INFORMATION
  Report Type: 
  Country: None (occurrence: None)
  Receive Date: 20111107
  Receipt Date: 20111102
  Transmission Date: 20120403
  Serious: Yes (Hospitalization, Other)
  Sender: FDA-Public Use
  Company Number: JP-PFIZER INC-2011267757

PATIENT
  Age: 30 Year
  Sex: Male

DRUGS (1)
  1. METHYLPREDNISOLONE [Suspect]
     Indication: BASEDOW'S DISEASE
     Dosage: 1000 MG, UNK

REACTIONS (1)
  - THYROTOXIC PERIODIC PARALYSIS [None]
